FAERS Safety Report 6479557-5 (Version None)
Quarter: 2009Q4

REPORT INFORMATION
  Report Type: 
  Country: None (occurrence: None)
  Receive Date: 20091207
  Receipt Date: 20091207
  Transmission Date: 20100525
  Serious: No
  Sender: FDA-Public Use
  Company Number: None

PATIENT
  Age: 64 Year
  Sex: Female
  Weight: 117.9352 kg

DRUGS (1)
  1. MINOXIDIL [Suspect]
     Indication: HYPERTENSION
     Dosage: 5 MG 2 TIMES A DAY PO
     Route: 048
     Dates: start: 20091002, end: 20091105

REACTIONS (4)
  - FALL [None]
  - HIRSUTISM [None]
  - NEURALGIA [None]
  - PRODUCT QUALITY ISSUE [None]
